FAERS Safety Report 8555999-9 (Version None)
Quarter: 2012Q3

REPORT INFORMATION
  Report Type: 
  Country: None (occurrence: None)
  Receive Date: 20120801
  Receipt Date: 20101110
  Transmission Date: 20120928
  Serious: Yes (Hospitalization)
  Sender: FDA-Public Use
  Company Number: US-BAYER-201030660NA

PATIENT
  Age: 26 Year
  Sex: Female
  Weight: 67.727 kg

DRUGS (10)
  1. ALBUTEROL [Concomitant]
  2. YASMIN [Concomitant]
  3. DROSPIRENONE AND ETHINYL ESTRADIOL [Suspect]
     Indication: ORAL CONTRACEPTION
     Route: 048
     Dates: start: 20081001, end: 20091201
  4. LEXAPRO [Concomitant]
  5. PHENTERMINE [Concomitant]
  6. PRILOSEC [Concomitant]
  7. MAXALT [Concomitant]
  8. YAZ [Concomitant]
  9. KAPIDEX [Concomitant]
  10. ZEGERID [Concomitant]

REACTIONS (12)
  - DIARRHOEA [None]
  - HEADACHE [None]
  - ANXIETY [None]
  - NAUSEA [None]
  - GASTROOESOPHAGEAL REFLUX DISEASE [None]
  - DYSPEPSIA [None]
  - ABDOMINAL PAIN [None]
  - DECREASED APPETITE [None]
  - CHOLECYSTITIS CHRONIC [None]
  - REGURGITATION [None]
  - VOMITING [None]
  - CONSTIPATION [None]
